FAERS Safety Report 5261294-6 (Version None)
Quarter: 2007Q1

REPORT INFORMATION
  Report Type: 
  Country: None (occurrence: None)
  Receive Date: 20070306
  Receipt Date: 20070222
  Transmission Date: 20070707
  Serious: Yes (Hospitalization)
  Sender: FDA-Public Use
  Company Number: 2007-00466

PATIENT
  Age: 61 Year
  Sex: Male
  Weight: 91.7 kg

DRUGS (11)
  1. VELCADE [Suspect]
     Indication: MULTIPLE MYELOMA
     Dosage: 2.60 MG,  INTRAVENOUS
     Route: 042
     Dates: start: 20070129, end: 20070218
  2. VELCADE [Suspect]
  3. DOXORUBICIN HCL [Suspect]
     Indication: MULTIPLE MYELOMA
     Dosage: 72.00 MG, INTRAVENOUS
     Route: 042
     Dates: start: 20070129, end: 20070218
  4. DEXAMETHASONE [Suspect]
     Indication: MULTIPLE MYELOMA
  5. LANSOPRAZOLE [Concomitant]
  6. VITAMIN B COMPLEX (PYRIDOXINE HYDROCHLORIDE, THIAMINE HYDROCHLORIDE, R [Concomitant]
  7. PYRIDOXINE (PYRIXODINE) [Concomitant]
  8. FOLIC AICD (FOLIC ACID) [Concomitant]
  9. ACYCLOVIR [Concomitant]
  10. SULFAMETHOXAZOLE + TRIMETHOPRIM [Concomitant]
  11. OXYCONTIN [Concomitant]

REACTIONS (3)
  - PRODUCTIVE COUGH [None]
  - PYREXIA [None]
  - SPUTUM DISCOLOURED [None]
